FAERS Safety Report 10191904 (Version 1)
Quarter: 2014Q2

REPORT INFORMATION
  Report Type: Spontaneous
  Country: US (occurrence: None)
  Receive Date: 20140522
  Receipt Date: 20140522
  Transmission Date: 20141212
  Serious: No
  Sender: FDA-Public Use
  Company Number: None

PATIENT
  Age: 25 Year
  Sex: Male

DRUGS (2)
  1. OLANZAPINE ODT [Suspect]
     Indication: MENTAL DISORDER
     Dosage: 20MG?BID?ODT
  2. DIVALPROEX [Suspect]
     Indication: MENTAL DISORDER
     Route: 048

REACTIONS (3)
  - Hypophagia [None]
  - Paranoia [None]
  - Weight increased [None]
